FAERS Safety Report 9855069 (Version 1)
Quarter: 2014Q1

REPORT INFORMATION
  Report Type: Spontaneous
  Country: JP (occurrence: None)
  Receive Date: 20140127
  Receipt Date: 20140127
  Transmission Date: 20141002
  Serious: No
  Sender: FDA-Public Use
  Company Number: 2014P1000427

PATIENT
  Age: 70 Year
  Sex: Male

DRUGS (4)
  1. IRINOTECAN [Suspect]
     Indication: HEPATIC NEOPLASM
     Dosage: 150MG/M^2;Q2W
  2. OXALIPLATIN [Suspect]
     Indication: HEPATIC NEOPLASM
     Dosage: 85MG/M^2
  3. LEVOFOLINATE [Suspect]
     Indication: HEPATIC NEOPLASM
     Route: 042
  4. FLUOROURACIL [Concomitant]

REACTIONS (5)
  - Pulmonary oedema [None]
  - Shock [None]
  - Lung infiltration [None]
  - Therapy responder [None]
  - Presyncope [None]
